FAERS Safety Report 13342155 (Version 1)
Quarter: 2017Q1

REPORT INFORMATION
  Report Type: Spontaneous
  Country: US (occurrence: US)
  Receive Date: 20170316
  Receipt Date: 20170316
  Transmission Date: 20170428
  Serious: Yes (Other)
  Sender: FDA-Public Use
  Company Number: US-PFIZER INC-2017107399

PATIENT
  Age: 75 Year
  Sex: Female

DRUGS (1)
  1. DAPTOMYCIN. [Suspect]
     Active Substance: DAPTOMYCIN
     Indication: ENTEROCOCCAL INFECTION
     Dosage: 6 MG/KG, DAILY (300MG)
     Route: 042

REACTIONS (1)
  - Neutropenia [Recovered/Resolved]
